FAERS Safety Report 6829987-4 (Version None)
Quarter: 2010Q3

REPORT INFORMATION
  Report Type: 
  Country: None (occurrence: None)
  Receive Date: 20100711
  Receipt Date: 20100417
  Transmission Date: 20110219
  Serious: No
  Sender: FDA-Public Use
  Company Number: US-ALLERGAN-1005061US

PATIENT
  Age: 44 Year
  Sex: Female

DRUGS (5)
  1. LATISSE [Suspect]
     Indication: GROWTH OF EYELASHES
     Dosage: 1 GTT, QOD
  2. ALLEGRA [Concomitant]
     Dosage: UNK
  3. COMBINATIONS OF VITAMINS [Concomitant]
     Dosage: UNK
  4. ST JOHN'S WART [Concomitant]
     Dosage: UNK
  5. FISH OIL [Concomitant]
     Dosage: UNK

REACTIONS (2)
  - MADAROSIS [None]
  - TRICHORRHEXIS [None]
